FAERS Safety Report 25475271 (Version 1)
Quarter: 2025Q2

REPORT INFORMATION
  Report Type: Spontaneous
  Country: IN (occurrence: IN)
  Receive Date: 20250624
  Receipt Date: 20250624
  Transmission Date: 20250717
  Serious: Yes (Other)
  Sender: NOVARTIS
  Company Number: IN-002147023-NVSC2025IN098538

PATIENT
  Age: 60 Year
  Sex: Female

DRUGS (2)
  1. BROLUCIZUMAB [Suspect]
     Active Substance: BROLUCIZUMAB
     Indication: Polycythaemia vera
     Route: 031
  2. BROLUCIZUMAB [Suspect]
     Active Substance: BROLUCIZUMAB
     Route: 031

REACTIONS (5)
  - Retinal vasculitis [Unknown]
  - Papilloedema [Unknown]
  - Visual impairment [Unknown]
  - Vitreous floaters [Unknown]
  - Off label use [Unknown]
